FAERS Safety Report 9540790 (Version 5)
Quarter: 2019Q1

REPORT INFORMATION
  Report Type: Spontaneous
  Country: FR (occurrence: FR)
  Receive Date: 20130920
  Receipt Date: 20190206
  Transmission Date: 20190418
  Serious: Yes (Death, Hospitalization)
  Sender: FDA-Public Use
  Company Number: FR-PFIZER INC-2013266471

PATIENT
  Age: 50 Year
  Sex: Female
  Weight: 57 kg

DRUGS (3)
  1. FLUOROURACILE PFIZER [Suspect]
     Active Substance: FLUOROURACIL
     Dosage: 3000MG/M2 (4800 MG) OVER 46 HOURS
     Route: 041
     Dates: start: 20130910, end: 20130912
  2. OXALIPLATIN. [Suspect]
     Active Substance: OXALIPLATIN
     Indication: COLON CANCER
     Dosage: 85 MG/M2 (135 MG) DURING 2 HOURS
     Route: 041
     Dates: start: 20130910, end: 20130910
  3. FLUOROURACILE PFIZER [Suspect]
     Active Substance: FLUOROURACIL
     Indication: COLON CANCER
     Dosage: 400 MG/M2 (644MG) OVER 10MIN
     Route: 040
     Dates: start: 20130910, end: 20130910

REACTIONS (8)
  - Acute coronary syndrome [Fatal]
  - Stress cardiomyopathy [Fatal]
  - Acute pulmonary oedema [Fatal]
  - Chest pain [Fatal]
  - Dyspnoea [Fatal]
  - Cardiogenic shock [Fatal]
  - Malaise [Unknown]
  - Nausea [Unknown]

NARRATIVE: CASE EVENT DATE: 20130913
